FAERS Safety Report 5625230-2 (Version None)
Quarter: 2008Q1

REPORT INFORMATION
  Report Type: 
  Country: None (occurrence: None)
  Receive Date: 20080208
  Receipt Date: 20080129
  Transmission Date: 20080703
  Serious: Yes (Death, Hospitalization)
  Sender: FDA-Public Use
  Company Number: E2090-00384-CLI-CN

PATIENT
  Age: 41 Year
  Sex: Male
  Weight: 78 kg

DRUGS (6)
  1. ZONEGRAN [Suspect]
     Indication: EPILEPSY
     Dosage: 400 MG, 2 IN 1 D, ORAL
     Route: 048
     Dates: start: 20070403, end: 20071205
  2. ZONISAMIDE [Suspect]
     Indication: EPILEPSY
     Dosage: DOUBLE BLIND, 2 IN 1 D, ORAL
     Route: 048
     Dates: start: 20061114, end: 20070401
  3. SEROXAT (PAROXETINE) [Concomitant]
  4. TOPAMAX [Concomitant]
  5. CLONAZEPAM [Concomitant]
  6. CARBAMAZEPINE [Concomitant]

REACTIONS (2)
  - COMPLETED SUICIDE [None]
  - DEPRESSION [None]
